FAERS Safety Report 20340471 (Version 2)
Quarter: 2022Q1

REPORT INFORMATION
  Report Type: Report from Study
  Country: KR (occurrence: KR)
  Receive Date: 20220117
  Receipt Date: 20220225
  Transmission Date: 20220423
  Serious: Yes (Hospitalization, Disabling, Other)
  Sender: FDA-Public Use
  Company Number: KR-BRISTOL-MYERS SQUIBB COMPANY-BMS-2022-000491

PATIENT
  Age: 89 Year
  Sex: Female
  Weight: 55.2 kg

DRUGS (1)
  1. APIXABAN [Suspect]
     Active Substance: APIXABAN
     Indication: Cerebrovascular accident prophylaxis
     Dosage: 2.5 MILLIGRAM, BID
     Route: 065
     Dates: end: 20211018

REACTIONS (2)
  - Ischaemic stroke [Recovered/Resolved with Sequelae]
  - Colorectal cancer [Unknown]

NARRATIVE: CASE EVENT DATE: 20211008
